FAERS Safety Report 6519957-8 (Version None)
Quarter: 2009Q4

REPORT INFORMATION
  Report Type: 
  Country: None (occurrence: None)
  Receive Date: 20091229
  Receipt Date: 20091216
  Transmission Date: 20100525
  Serious: Yes (Disabling)
  Sender: FDA-Public Use
  Company Number: PT-MPIJNJ-2009-05261

PATIENT

DRUGS (1)
  1. VELCADE [Suspect]
     Indication: MEDICATION ERROR
     Dosage: UNK
     Dates: start: 20090717

REACTIONS (3)
  - BLINDNESS UNILATERAL [None]
  - DRUG ADMINISTRATION ERROR [None]
  - DRUG DISPENSING ERROR [None]
